FAERS Safety Report 17124217 (Version 1)
Quarter: 2019Q4

REPORT INFORMATION
  Report Type: Report from Study
  Country: RU (occurrence: RU)
  Receive Date: 20191206
  Receipt Date: 20191206
  Transmission Date: 20200122
  Serious: Yes (Other)
  Sender: FDA-Public Use
  Company Number: RU-ASTRAZENECA-2019SF73619

PATIENT
  Age: 52 Year
  Sex: Male
  Weight: 83 kg

DRUGS (7)
  1. AMIODARONE [Concomitant]
     Active Substance: AMIODARONE
  2. PRESTARIUM [Concomitant]
     Active Substance: PERINDOPRIL
  3. VEROSPIRON [Concomitant]
     Active Substance: SPIRONOLACTONE
  4. BISOPROLOL [Concomitant]
     Active Substance: BISOPROLOL
  5. BRILINTA [Suspect]
     Active Substance: TICAGRELOR
     Indication: MYOCARDIAL INFARCTION
     Route: 048
     Dates: start: 20190921
  6. DIUVER [Concomitant]
     Active Substance: TORSEMIDE
  7. OMEPRAZOLE. [Concomitant]
     Active Substance: OMEPRAZOLE

REACTIONS (8)
  - Pallor [Unknown]
  - Muscular weakness [Unknown]
  - Gait disturbance [Unknown]
  - Malaise [Unknown]
  - Asthenia [Unknown]
  - Blood pressure decreased [Not Recovered/Not Resolved]
  - Fatigue [Unknown]
  - Weight decreased [Unknown]

NARRATIVE: CASE EVENT DATE: 20190921
